FAERS Safety Report 17684139 (Version 1)
Quarter: 2020Q2

REPORT INFORMATION
  Report Type: Spontaneous
  Country: GB (occurrence: GB)
  Receive Date: 20200420
  Receipt Date: 20200420
  Transmission Date: 20200714
  Serious: Yes (Other)
  Sender: FDA-Public Use
  Company Number: GB-BEH-2020115905

PATIENT
  Age: 63 Year
  Sex: Male

DRUGS (1)
  1. HIZENTRA [Suspect]
     Active Substance: HUMAN IMMUNOGLOBULIN G
     Indication: PRODUCT USED FOR UNKNOWN INDICATION
     Dosage: 4 GRAM, QW
     Route: 058
     Dates: start: 2013, end: 202003

REACTIONS (3)
  - Nerve compression [Not Recovered/Not Resolved]
  - Paralysis [Unknown]
  - Muscular weakness [Not Recovered/Not Resolved]
